FAERS Safety Report 23050974 (Version 1)
Quarter: 2023Q4

REPORT INFORMATION
  Report Type: Spontaneous
  Country: US (occurrence: None)
  Receive Date: 20231009
  Receipt Date: 20231009
  Transmission Date: 20240110
  Serious: Yes (Other)
  Sender: FDA-Public Use
  Company Number: None

PATIENT
  Sex: Male

DRUGS (2)
  1. TOBRAMYCIN [Suspect]
     Active Substance: TOBRAMYCIN
     Indication: Chronic obstructive pulmonary disease
     Dosage: OTHER QUANTITY : 300 MG/5ML;?FREQUENCY : AS DIRECTED;?
     Route: 048
     Dates: start: 20190514
  2. TOBRAMYCIN [Suspect]
     Active Substance: TOBRAMYCIN
     Dosage: OTHER QUANTITY : INHALE 1/2 VIA NEB;?FREQUENCY : AS DIRECTED;?
     Route: 048

REACTIONS (2)
  - Dyspnoea [None]
  - Pyrexia [None]
